FAERS Safety Report 17000082 (Version 1)
Quarter: 2019Q4

REPORT INFORMATION
  Report Type: Spontaneous
  Country: US (occurrence: US)
  Receive Date: 20191106
  Receipt Date: 20191106
  Transmission Date: 20200122
  Serious: No
  Sender: FDA-Public Use
  Company Number: US-MAYNE PHARMA-2019MYN000630

PATIENT

DRUGS (1)
  1. CAMILA [Suspect]
     Active Substance: NORETHINDRONE
     Indication: CONTRACEPTION
     Dosage: UNK UNK, BID
     Route: 048

REACTIONS (2)
  - Drug ineffective [Unknown]
  - Vaginal haemorrhage [Recovered/Resolved]
